FAERS Safety Report 4885365-9 (Version None)
Quarter: 2006Q1

REPORT INFORMATION
  Report Type: 
  Country: None (occurrence: None)
  Receive Date: 20060119
  Receipt Date: 20060106
  Transmission Date: 20060701
  Serious: Yes (Hospitalization, Disabling)
  Sender: FDA-Public Use
  Company Number: 2006AP00120

PATIENT
  Age: 23567 Day
  Sex: Female

DRUGS (7)
  1. QUETIAPINE FUMARATE [Suspect]
     Indication: BIPOLAR I DISORDER
     Dosage: TITRATED DAILY
     Route: 048
     Dates: start: 20051130, end: 20051203
  2. QUETIAPINE FUMARATE [Suspect]
     Dosage: TITRATED DAILY
     Route: 048
     Dates: start: 20051203
  3. STUDY PROCEDURE [Suspect]
  4. LAMICTAL [Concomitant]
     Indication: ANTIDEPRESSANT THERAPY
     Route: 048
     Dates: start: 20051123
  5. SOLIAN [Concomitant]
     Indication: PSYCHOTIC DISORDER
     Route: 048
     Dates: end: 20051123
  6. RIIVOTRIL [Concomitant]
     Indication: SEDATION
     Dosage: } 3 MONTHS PRIOR TO STUDY START
     Dates: end: 20051123
  7. RIIVOTRIL [Concomitant]
     Indication: ANTIDEPRESSANT THERAPY
     Dosage: } 3 MONTHS PRIOR TO STUDY START
     Dates: end: 20051123

REACTIONS (1)
  - EATING DISORDER [None]
